FAERS Safety Report 9496213 (Version 3)
Quarter: 2013Q4

REPORT INFORMATION
  Report Type: Report from Study
  Country: RS (occurrence: RS)
  Receive Date: 20130904
  Receipt Date: 20131010
  Transmission Date: 20140711
  Serious: Yes (Death)
  Sender: FDA-Public Use
  Company Number: RS-009507513-1301SRB014330

PATIENT
  Age: 51 Year
  Sex: Female
  Weight: 77.5 kg

DRUGS (1)
  1. ASENAPINE MALEATE-BIPOLAR DISORDER [Suspect]
     Indication: BIPOLAR I DISORDER
     Dosage: 10 MG, BID
     Route: 060
     Dates: start: 20121102

REACTIONS (1)
  - Cardiac arrest [Fatal]
